FAERS Safety Report 26140911 (Version 2)
Quarter: 2025Q4

REPORT INFORMATION
  Report Type: Spontaneous
  Country: JP (occurrence: JP)
  Receive Date: 20251210
  Receipt Date: 20251224
  Transmission Date: 20260117
  Serious: Yes (Other)
  Sender: ALEXION PHARMACEUTICALS
  Company Number: JP-AstraZeneca-CH-01006331A

PATIENT
  Sex: Female

DRUGS (4)
  1. ULTOMIRIS [Suspect]
     Active Substance: RAVULIZUMAB-CWVZ
     Indication: Paroxysmal nocturnal haemoglobinuria
     Dosage: 3000 MILLIGRAM
  2. VOYDEYA [Suspect]
     Active Substance: DANICOPAN
     Indication: Paroxysmal nocturnal haemoglobinuria
     Dosage: 150 MILLIGRAM, TID
     Route: 065
     Dates: start: 20250606, end: 20251002
  3. VOYDEYA [Suspect]
     Active Substance: DANICOPAN
     Dosage: 100 MILLIGRAM, TID
     Route: 065
     Dates: start: 20250926
  4. VOYDEYA [Suspect]
     Active Substance: DANICOPAN
     Dosage: 50 MILLIGRAM, TID
     Route: 065

REACTIONS (2)
  - Breakthrough haemolysis [Unknown]
  - Anaemia [Not Recovered/Not Resolved]
